FAERS Safety Report 9823196 (Version 4)
Quarter: 2014Q2

REPORT INFORMATION
  Report Type: Spontaneous
  Country: PT (occurrence: PT)
  Receive Date: 20140116
  Receipt Date: 20140618
  Transmission Date: 20141212
  Serious: Yes (Other)
  Sender: FDA-Public Use
  Company Number: PT-009507513-1401PRT001343

PATIENT
  Age: 55 Year
  Sex: Female

DRUGS (5)
  1. VICTRELIS [Suspect]
     Indication: HEPATITIS C
     Dosage: VALIDADE DA ?LTIMA EMBALAGEM LEVANTADA A 10-07-2013: 31-07-2013
     Route: 048
     Dates: start: 20121226, end: 201308
  2. PEGASYS [Interacting]
     Indication: HEPATITIS C
     Dosage: 0.18 MG, QW
     Route: 058
     Dates: start: 20121128, end: 20131030
  3. COPEGUS [Interacting]
     Indication: HEPATITIS C
     Dosage: REDU??O DE DOSE PARA 800MG/DIA AP?S 12 SEMANAS, AT? UM M?NIMO DE 600MG/DIA ? 31? SEMANA TRATAMENTO
     Route: 048
     Dates: start: 20121128, end: 20131030
  4. ALPRAZOLAM [Concomitant]
     Indication: ANXIETY
     Dosage: AO DEITAR
     Route: 048
     Dates: start: 201212
  5. EUTIROX [Concomitant]
     Indication: AUTOIMMUNE THYROIDITIS
     Route: 048
     Dates: start: 201007

REACTIONS (21)
  - Malaise [Recovering/Resolving]
  - Alopecia [Recovered/Resolved]
  - Anaemia [Recovered/Resolved]
  - Anxiety [Recovered/Resolved]
  - Arthralgia [Recovered/Resolved]
  - Asthenia [Recovered/Resolved]
  - Chills [Recovered/Resolved]
  - Cough [Recovering/Resolving]
  - Depression [Recovering/Resolving]
  - Diarrhoea [Recovered/Resolved]
  - Dizziness [Recovered/Resolved]
  - Dysgeusia [Recovered/Resolved]
  - Dyspnoea [Recovered/Resolved]
  - Fatigue [Recovered/Resolved]
  - Pyrexia [Recovered/Resolved]
  - Hypotension [Recovering/Resolving]
  - Leukopenia [Recovered/Resolved]
  - Nausea [Recovered/Resolved]
  - Thrombocytopenia [Recovered/Resolved]
  - Vomiting [Recovered/Resolved]
  - Decreased appetite [Recovered/Resolved]
